FAERS Safety Report 17857380 (Version 2)
Quarter: 2020Q3

REPORT INFORMATION
  Report Type: Spontaneous
  Country: US (occurrence: US)
  Receive Date: 20200603
  Receipt Date: 20200706
  Transmission Date: 20201103
  Serious: Yes (Hospitalization)
  Sender: FDA-Public Use
  Company Number: US-BEH-2020118054

PATIENT
  Age: 50 Year
  Sex: Female

DRUGS (1)
  1. HIZENTRA [Suspect]
     Active Substance: HUMAN IMMUNOGLOBULIN G
     Indication: RENAL TRANSPLANT
     Dosage: 10 GRAM, QOW
     Route: 058
     Dates: start: 20200211

REACTIONS (6)
  - No adverse event [Unknown]
  - Headache [Unknown]
  - Decreased appetite [Unknown]
  - Product use in unapproved indication [Unknown]
  - Staphylococcal bacteraemia [Unknown]
  - Clostridium difficile infection [Unknown]

NARRATIVE: CASE EVENT DATE: 202006
